FAERS Safety Report 6553719-0 (Version None)
Quarter: 2010Q1

REPORT INFORMATION
  Report Type: 
  Country: None (occurrence: None)
  Receive Date: 20100122
  Receipt Date: 20100111
  Transmission Date: 20100710
  Serious: Yes (Hospitalization)
  Sender: FDA-Public Use
  Company Number: 230337J10USA

PATIENT
  Age: 50 Year
  Sex: Male

DRUGS (4)
  1. REBIF [Suspect]
     Indication: MULTIPLE SCLEROSIS
     Dates: start: 20000101, end: 20020101
  2. STEROIDS (CORTICOSTEROIDS) [Suspect]
     Indication: MULTIPLE SCLEROSIS RELAPSE
     Dates: start: 20020101, end: 20020101
  3. LITHIUM (LITHIUM ASPARTATE) [Concomitant]
  4. LAMICTAL [Concomitant]

REACTIONS (4)
  - DIPLOPIA [None]
  - DYSKINESIA [None]
  - MULTIPLE SCLEROSIS RELAPSE [None]
  - RASH [None]
